FAERS Safety Report 4352727-8 (Version None)
Quarter: 2004Q2

REPORT INFORMATION
  Report Type: 
  Country: None (occurrence: None)
  Receive Date: 20040504
  Receipt Date: 20030703
  Transmission Date: 20050107
  Serious: Yes (Hospitalization)
  Sender: FDA-Public Use
  Company Number: FR-GLAXOSMITHKLINE-B0303629A

PATIENT
  Sex: Male

DRUGS (1)
  1. BECOTIDE [Suspect]
     Route: 055
     Dates: start: 20030701, end: 20030701

REACTIONS (1)
  - ASTHMA [None]
